FAERS Safety Report 8067804-8 (Version None)
Quarter: 2012Q1

REPORT INFORMATION
  Report Type: 
  Country: None (occurrence: None)
  Receive Date: 20120124
  Receipt Date: 20120118
  Transmission Date: 20120608
  Serious: Yes (Hospitalization, Other)
  Sender: FDA-Public Use
  Company Number: PHHY2012BR005251

PATIENT
  Age: 70 Year
  Sex: Female

DRUGS (2)
  1. FORMOTEROL FUMARATE [Suspect]
     Indication: PULMONARY FIBROSIS
  2. FORMOTEROL FUMARATE [Suspect]

REACTIONS (3)
  - FATIGUE [None]
  - HYPERTENSION [None]
  - PULMONARY OEDEMA [None]
